FAERS Safety Report 7371219-5 (Version None)
Quarter: 2011Q1

REPORT INFORMATION
  Report Type: 
  Country: None (occurrence: None)
  Receive Date: 20110321
  Receipt Date: 20110321
  Transmission Date: 20110831
  Serious: No
  Sender: FDA-Public Use
  Company Number: None

PATIENT
  Sex: Male

DRUGS (2)
  1. REVLAMID NOT PROVIDED NOT PROVIDED [Suspect]
  2. ZOMETA [Suspect]
     Indication: MULTIPLE MYELOMA

REACTIONS (1)
  - RASH [None]
